FAERS Safety Report 9681557 (Version 2)
Quarter: 2013Q4

REPORT INFORMATION
  Report Type: Report from Study
  Country: IL (occurrence: IL)
  Receive Date: 20131111
  Receipt Date: 20131111
  Transmission Date: 20140711
  Serious: Yes (Hospitalization)
  Sender: FDA-Public Use
  Company Number: IL-ABBVIE-13P-082-1123336-00

PATIENT
  Sex: Female

DRUGS (4)
  1. HUMIRA [Suspect]
     Indication: PSORIATIC ARTHROPATHY
     Route: 058
     Dates: start: 20120902
  2. ACTONEL [Concomitant]
     Indication: OSTEOPOROSIS
  3. CALCIUM + VITAMIN D [Concomitant]
     Indication: OSTEOPOROSIS
  4. HYPERTENSION MEDICATIONS [Concomitant]
     Indication: PRODUCT USED FOR UNKNOWN INDICATION

REACTIONS (7)
  - Oral mucosal blistering [Recovering/Resolving]
  - Laryngeal oedema [Recovering/Resolving]
  - Face oedema [Not Recovered/Not Resolved]
  - Hypertension [Not Recovered/Not Resolved]
  - Oedema peripheral [Not Recovered/Not Resolved]
  - Drug ineffective [Not Recovered/Not Resolved]
  - Vocal cord polyp [Recovering/Resolving]
